FAERS Safety Report 7928029-7 (Version None)
Quarter: 2011Q4

REPORT INFORMATION
  Report Type: 
  Country: None (occurrence: None)
  Receive Date: 20111118
  Receipt Date: 20111109
  Transmission Date: 20120403
  Serious: Yes (Hospitalization)
  Sender: FDA-Public Use
  Company Number: US-BAYER-2011-038835

PATIENT
  Age: 26 Year
  Sex: Female
  Weight: 45.351 kg

DRUGS (5)
  1. YASMIN [Suspect]
     Indication: OVARIAN CYST RUPTURED
     Dosage: UNK
     Dates: start: 20060101, end: 20091201
  2. PAROXETINE HCL [Concomitant]
     Dosage: 20 MG, UNK
     Dates: start: 20090408, end: 20090715
  3. ACYCLOVIR [Concomitant]
     Dosage: UNK
     Dates: start: 20081220, end: 20090721
  4. YAZ [Suspect]
     Indication: OVARIAN CYST RUPTURED
     Dosage: UNK
     Dates: start: 20060101, end: 20091201
  5. SYNTHROID [Concomitant]
     Indication: HYPOTHYROIDISM
     Dosage: UNK
     Dates: start: 20090120, end: 20090912

REACTIONS (4)
  - INJURY [None]
  - PAIN [None]
  - CHOLECYSTITIS CHRONIC [None]
  - CHOLECYSTECTOMY [None]
